FAERS Safety Report 9184421 (Version 1)
Quarter: 2013Q1

REPORT INFORMATION
  Report Type: Spontaneous
  Country: US (occurrence: US)
  Receive Date: 20130322
  Receipt Date: 20130322
  Transmission Date: 20140127
  Serious: Yes (Hospitalization)
  Sender: FDA-Public Use
  Company Number: US-BAYER-2013-035149

PATIENT
  Age: 21 Year
  Sex: Female
  Weight: 73.47 kg

DRUGS (2)
  1. YAZ [Suspect]
  2. ALLEGRA [Concomitant]
     Dosage: 1 TAB BID

REACTIONS (1)
  - Pulmonary embolism [None]
